FAERS Safety Report 8136117-8 (Version None)
Quarter: 2012Q1

REPORT INFORMATION
  Report Type: 
  Country: None (occurrence: None)
  Receive Date: 20120214
  Receipt Date: 20120207
  Transmission Date: 20120608
  Serious: No
  Sender: FDA-Public Use
  Company Number: US-COVIDIEN/TYCO HEALTHCARE/MALLINCKRODT-T201200469

PATIENT
  Sex: Female

DRUGS (8)
  1. ESTROPIPATE [Concomitant]
     Indication: HORMONE REPLACEMENT THERAPY
     Dosage: 1.25 UNK, QD
     Route: 048
  2. GLYCOLAX [Concomitant]
     Indication: CONSTIPATION
     Dosage: 2 TBS, QD
     Route: 048
  3. BENAZEPRIL HYDROCHLORIDE [Concomitant]
     Indication: BLOOD PRESSURE
     Dosage: 40 MG, QD
     Route: 048
  4. FERROUS SULFATE TAB [Concomitant]
     Indication: SUPPLEMENTATION THERAPY
     Dosage: 325 MG, QD
     Route: 048
  5. FELODIPINE [Concomitant]
     Indication: BLOOD PRESSURE
     Dosage: 10 MG, QD
     Route: 048
  6. BUMETANIDE [Concomitant]
     Indication: BLOOD PRESSURE
     Dosage: 2 MG, QD
     Route: 048
  7. FENTANYL-100 [Suspect]
     Indication: BACK PAIN
     Dosage: 50 UG/HR, 1 FTS Q 3 DAYS
     Route: 062
     Dates: start: 20120108, end: 20120204
  8. HYDROCODONE BITARTRATE AND ACETAMINOPHEN [Concomitant]
     Indication: PAIN
     Dosage: 10/325, TID PRN
     Route: 048

REACTIONS (1)
  - PAIN IN EXTREMITY [None]
